FAERS Safety Report 25361665 (Version 2)
Quarter: 2025Q2

REPORT INFORMATION
  Report Type: Report from Study
  Country: MY (occurrence: MY)
  Receive Date: 20250527
  Receipt Date: 20250620
  Transmission Date: 20250717
  Serious: Yes (Death, Life-Threatening, Hospitalization)
  Sender: MERCK SHARP & DOHME LLC
  Company Number: MY-ASTRAZENECA-202503GLO026285MY

PATIENT
  Age: 67 Year
  Sex: Female
  Weight: 86 kg

DRUGS (48)
  1. PEMBROLIZUMAB [Suspect]
     Active Substance: PEMBROLIZUMAB
     Indication: Triple negative breast cancer
     Dosage: 200 MG, ONCE EVERY 3 WK
     Route: 042
     Dates: start: 20250127, end: 20250312
  2. PARECOXIB SODIUM [Concomitant]
     Active Substance: PARECOXIB SODIUM
     Indication: Hypersensitivity
     Dosage: 40 MG, SINGLE
     Route: 042
     Dates: start: 20250220, end: 20250220
  3. KYTRIL [Concomitant]
     Active Substance: GRANISETRON HYDROCHLORIDE
     Indication: Premedication
     Dosage: 3 MG, SINGLE
     Route: 042
     Dates: start: 20250312, end: 20250312
  4. KYTRIL [Concomitant]
     Active Substance: GRANISETRON HYDROCHLORIDE
     Indication: Premedication
     Dosage: 3 MG, SINGLE
     Route: 042
     Dates: start: 20250212, end: 20250212
  5. KYTRIL [Concomitant]
     Active Substance: GRANISETRON HYDROCHLORIDE
     Indication: Premedication
     Dosage: 3 MG, SINGLE
     Route: 042
     Dates: start: 20250226, end: 20250226
  6. KYTRIL [Concomitant]
     Active Substance: GRANISETRON HYDROCHLORIDE
     Indication: Premedication
     Dosage: 3 MG, SINGLE
     Route: 042
     Dates: start: 20250219, end: 20250219
  7. KYTRIL [Concomitant]
     Active Substance: GRANISETRON HYDROCHLORIDE
     Indication: Premedication
     Dosage: 3 MG, SINGLE
     Route: 042
     Dates: start: 20250127, end: 20250127
  8. KYTRIL [Concomitant]
     Active Substance: GRANISETRON HYDROCHLORIDE
     Indication: Premedication
     Dosage: 3 MG, SINGLE
     Route: 042
     Dates: start: 20250305, end: 20250305
  9. KYTRIL [Concomitant]
     Active Substance: GRANISETRON HYDROCHLORIDE
     Indication: Premedication
     Dosage: 3 MG, SINGLE
     Route: 042
     Dates: start: 20250204, end: 20250204
  10. PACLITAXEL [Suspect]
     Active Substance: PACLITAXEL
     Indication: Triple negative breast cancer
     Dosage: 80 MG/M2, ONCE EVERY 3 WK
     Route: 042
     Dates: start: 20250127, end: 20250312
  11. ESOMEPRAZOLE SODIUM [Concomitant]
     Active Substance: ESOMEPRAZOLE SODIUM
     Indication: Hypersensitivity
     Dosage: 40 MG, QD
     Route: 048
     Dates: start: 20250210
  12. ESOMEPRAZOLE SODIUM [Concomitant]
     Active Substance: ESOMEPRAZOLE SODIUM
     Indication: Hypersensitivity
     Dosage: 40 MG, QD
     Route: 048
     Dates: start: 20250210
  13. ESOMEPRAZOLE SODIUM [Concomitant]
     Active Substance: ESOMEPRAZOLE SODIUM
     Indication: Hypersensitivity
     Dosage: 40 MG, SINGLE
     Route: 042
     Dates: start: 20250220, end: 20250220
  14. PREDNISOLONE [Concomitant]
     Active Substance: PREDNISOLONE
     Indication: Hypersensitivity
     Dosage: 10 MG, BID
     Route: 048
     Dates: start: 20250220, end: 20250222
  15. SODIUM CHLORIDE [Concomitant]
     Active Substance: SODIUM CHLORIDE
     Indication: Hypersensitivity
     Dosage: UNK, SINGLE
     Route: 042
     Dates: start: 20250220, end: 20250220
  16. CHLORPHENIRAMINE MALEATE [Concomitant]
     Active Substance: CHLORPHENIRAMINE MALEATE
     Indication: Premedication
     Dosage: 10 MG, SINGLE
     Route: 042
     Dates: start: 20250312, end: 20250312
  17. CHLORPHENIRAMINE MALEATE [Concomitant]
     Active Substance: CHLORPHENIRAMINE MALEATE
     Indication: Premedication
     Dosage: 3 TIMES PER DAY
     Route: 048
     Dates: start: 20250220, end: 20250222
  18. CHLORPHENIRAMINE MALEATE [Concomitant]
     Active Substance: CHLORPHENIRAMINE MALEATE
     Indication: Premedication
     Dosage: 10 MG, SINGLE
     Route: 042
     Dates: start: 20250226, end: 20250226
  19. CHLORPHENIRAMINE MALEATE [Concomitant]
     Active Substance: CHLORPHENIRAMINE MALEATE
     Indication: Premedication
     Dosage: 10 MG, SINGLE
     Route: 042
     Dates: start: 20250220, end: 20250220
  20. CHLORPHENIRAMINE MALEATE [Concomitant]
     Active Substance: CHLORPHENIRAMINE MALEATE
     Indication: Premedication
     Dosage: 10 MG, SINGLE
     Route: 042
     Dates: start: 20250204, end: 20250204
  21. CHLORPHENIRAMINE MALEATE [Concomitant]
     Active Substance: CHLORPHENIRAMINE MALEATE
     Indication: Premedication
     Dosage: 10 MG, SINGLE
     Route: 042
     Dates: start: 20250219, end: 20250219
  22. CHLORPHENIRAMINE MALEATE [Concomitant]
     Active Substance: CHLORPHENIRAMINE MALEATE
     Indication: Premedication
     Dosage: 10 MG, SINGLE
     Route: 042
     Dates: start: 20250212, end: 20250212
  23. CHLORPHENIRAMINE MALEATE [Concomitant]
     Active Substance: CHLORPHENIRAMINE MALEATE
     Indication: Premedication
     Dosage: 10 MG, SINGLE
     Route: 042
     Dates: start: 20250127, end: 20250127
  24. CHLORPHENIRAMINE MALEATE [Concomitant]
     Active Substance: CHLORPHENIRAMINE MALEATE
     Indication: Premedication
     Dosage: 10 MG, SINGLE
     Route: 042
     Dates: start: 20250305, end: 20250305
  25. PANTOPRAZOLE SODIUM [Concomitant]
     Active Substance: PANTOPRAZOLE SODIUM
     Indication: Premedication
     Dosage: 40 MG, SINGLE
     Route: 042
     Dates: start: 20250127, end: 20250127
  26. PANTOPRAZOLE SODIUM [Concomitant]
     Active Substance: PANTOPRAZOLE SODIUM
     Indication: Premedication
     Dosage: 40 MG, SINGLE
     Route: 042
     Dates: start: 20250204, end: 20250204
  27. CYCLOPHOSPHAMIDE [Suspect]
     Active Substance: CYCLOPHOSPHAMIDE
     Indication: Triple negative breast cancer
     Route: 042
  28. CEFUROXIME AXETIL [Concomitant]
     Active Substance: CEFUROXIME AXETIL
     Indication: Pyrexia
     Dosage: 210 MG, BID
     Route: 048
     Dates: start: 20250227, end: 20250301
  29. DEXAMETHASONE [Concomitant]
     Active Substance: DEXAMETHASONE
     Indication: Prophylaxis
     Dosage: 8 MG, SINGLE
     Route: 042
     Dates: start: 20250312, end: 20250312
  30. DEXAMETHASONE [Concomitant]
     Active Substance: DEXAMETHASONE
     Indication: Prophylaxis
     Dosage: 8 MG, SINGLE
     Route: 042
     Dates: start: 20250204, end: 20250204
  31. DEXAMETHASONE [Concomitant]
     Active Substance: DEXAMETHASONE
     Indication: Prophylaxis
     Dosage: 8 MG, SINGLE
     Route: 042
     Dates: start: 20250305, end: 20250305
  32. DEXAMETHASONE [Concomitant]
     Active Substance: DEXAMETHASONE
     Indication: Prophylaxis
     Dosage: 8 MG, SINGLE
     Route: 042
     Dates: start: 20250212, end: 20250212
  33. DEXAMETHASONE [Concomitant]
     Active Substance: DEXAMETHASONE
     Indication: Prophylaxis
     Dosage: 8 MG, SINGLE
     Route: 042
     Dates: start: 20250127, end: 20250127
  34. DEXAMETHASONE [Concomitant]
     Active Substance: DEXAMETHASONE
     Indication: Prophylaxis
     Dosage: 2 MG, BID
     Route: 048
     Dates: start: 20250128, end: 20250130
  35. DEXAMETHASONE [Concomitant]
     Active Substance: DEXAMETHASONE
     Indication: Prophylaxis
     Dosage: 8 MG, SINGLE
     Route: 042
     Dates: start: 20250219, end: 20250219
  36. DEXAMETHASONE [Concomitant]
     Active Substance: DEXAMETHASONE
     Indication: Prophylaxis
     Dosage: 8 MG, SINGLE
     Route: 042
     Dates: start: 20250226, end: 20250226
  37. FILGRASTIM [Concomitant]
     Active Substance: FILGRASTIM
     Indication: Neutrophil count decreased
     Dosage: 300 UG, SINGLE
     Route: 058
     Dates: start: 20250324, end: 20250324
  38. ACETAMINOPHEN [Concomitant]
     Active Substance: ACETAMINOPHEN
     Indication: Hypersensitivity
     Dosage: 4 TIMES PER DAY
     Route: 048
     Dates: start: 20250220, end: 20250222
  39. MOMETASONE FUROATE [Concomitant]
     Active Substance: MOMETASONE FUROATE
     Indication: Dry skin
     Dosage: TWICE PER DAY
     Route: 061
     Dates: start: 20250220
  40. MOMETASONE FUROATE [Concomitant]
     Active Substance: MOMETASONE FUROATE
     Indication: Dry skin
     Dosage: TWICE PER DAY
     Route: 061
     Dates: start: 20250220
  41. EMEND [Concomitant]
     Active Substance: APREPITANT
     Indication: Premedication
     Route: 048
     Dates: start: 20250127, end: 20250129
  42. EMEND [Concomitant]
     Active Substance: APREPITANT
     Indication: Premedication
     Route: 048
     Dates: start: 20250226, end: 20250226
  43. EMEND [Concomitant]
     Active Substance: APREPITANT
     Indication: Premedication
     Route: 048
     Dates: start: 20250312, end: 20250312
  44. EMEND [Concomitant]
     Active Substance: APREPITANT
     Indication: Premedication
     Route: 048
     Dates: start: 20250219, end: 20250219
  45. EMEND [Concomitant]
     Active Substance: APREPITANT
     Indication: Premedication
     Route: 048
     Dates: start: 20250212, end: 20250212
  46. EMEND [Concomitant]
     Active Substance: APREPITANT
     Indication: Premedication
     Route: 048
     Dates: start: 20250305, end: 20250305
  47. EMEND [Concomitant]
     Active Substance: APREPITANT
     Indication: Premedication
     Route: 048
     Dates: start: 20250204, end: 20250206
  48. CARBOPLATIN [Suspect]
     Active Substance: CARBOPLATIN
     Indication: Triple negative breast cancer
     Route: 042
     Dates: start: 20250127, end: 20250312

REACTIONS (1)
  - Staphylococcal sepsis [Fatal]

NARRATIVE: CASE EVENT DATE: 20250327
